FAERS Safety Report 4587426-0 (Version None)
Quarter: 2005Q1

REPORT INFORMATION
  Report Type: 
  Country: None (occurrence: None)
  Receive Date: 20050218
  Receipt Date: 20050210
  Transmission Date: 20050727
  Serious: Yes (Hospitalization, Other)
  Sender: FDA-Public Use
  Company Number: FR-ABBOTT-05P-056-0290316-00

PATIENT
  Sex: Female
  Weight: 3.17 kg

DRUGS (1)
  1. DEPAKENE [Suspect]
     Indication: DRUG EXPOSURE DURING PREGNANCY

REACTIONS (11)
  - DEPRESSED LEVEL OF CONSCIOUSNESS [None]
  - FEEDING PROBLEM IN NEWBORN [None]
  - HYPERTONIA NEONATAL [None]
  - HYPOTONIA NEONATAL [None]
  - MATERNAL DRUGS AFFECTING FOETUS [None]
  - MYOCLONUS [None]
  - NEONATAL HYPOXIA [None]
  - NEONATAL RESPIRATORY DISTRESS SYNDROME [None]
  - NUCLEAR MAGNETIC RESONANCE IMAGING BRAIN ABNORMAL [None]
  - PERIVENTRICULAR LEUKOMALACIA [None]
  - UMBILICAL CORD AROUND NECK [None]
